FAERS Safety Report 8564573-X (Version None)
Quarter: 2012Q3

REPORT INFORMATION
  Report Type: 
  Country: None (occurrence: None)
  Receive Date: 20120803
  Receipt Date: 20120731
  Transmission Date: 20120928
  Serious: Yes (Other)
  Sender: FDA-Public Use
  Company Number: VE-PFIZER INC-2012185479

PATIENT
  Age: 8 Year
  Sex: Female

DRUGS (2)
  1. UNASYN [Suspect]
     Indication: MONONUCLEOSIS SYNDROME
     Dosage: UNK
     Route: 051
  2. UNASYN [Suspect]
     Indication: LOWER RESPIRATORY TRACT INFECTION

REACTIONS (3)
  - PLATELET COUNT INCREASED [None]
  - WHITE BLOOD CELL COUNT INCREASED [None]
  - HAEMATOMA [None]
